FAERS Safety Report 18504465 (Version 2)
Quarter: 2020Q4

REPORT INFORMATION
  Report Type: Spontaneous
  Country: DE (occurrence: DE)
  Receive Date: 20201114
  Receipt Date: 20201123
  Transmission Date: 20210114
  Serious: Yes (Other)
  Sender: FDA-Public Use
  Company Number: DE-AMGEN-DEUSP2020183512

PATIENT
  Sex: Male

DRUGS (4)
  1. SECUKINUMAB. [Concomitant]
     Active Substance: SECUKINUMAB
     Indication: PALMOPLANTAR PUSTULOSIS
     Dosage: 300 MILLIGRAM, QMO
  2. APREMILAST [Suspect]
     Active Substance: APREMILAST
     Indication: PALMOPLANTAR PUSTULOSIS
     Dosage: 30 MILLIGRAM, BID
     Route: 048
  3. CYCLOSPORIN A [Concomitant]
     Active Substance: CYCLOSPORINE
     Indication: PALMOPLANTAR PUSTULOSIS
     Dosage: UNK UNK (UPTO 400 MG PER DAY)
  4. PREDNISOLONE. [Concomitant]
     Active Substance: PREDNISOLONE
     Indication: PALMOPLANTAR PUSTULOSIS
     Dosage: 10 MILLIGRAM, QD

REACTIONS (3)
  - Psoriatic arthropathy [Unknown]
  - Diarrhoea [Unknown]
  - Nausea [Unknown]
